FAERS Safety Report 14998171 (Version 1)
Quarter: 2018Q2

REPORT INFORMATION
  Report Type: Spontaneous
  Country: ES (occurrence: ES)
  Receive Date: 20180611
  Receipt Date: 20180611
  Transmission Date: 20180711
  Serious: Yes (Death)
  Sender: FDA-Public Use
  Company Number: ES-ANIPHARMA-2018-ES-000056

PATIENT
  Age: 88 Year
  Sex: Female

DRUGS (2)
  1. VANCOMYCIN HYDROCHLORIDE (NON-SPECIFIC) [Suspect]
     Active Substance: VANCOMYCIN HYDROCHLORIDE
  2. ERTAPENEM. [Concomitant]
     Active Substance: ERTAPENEM SODIUM

REACTIONS (2)
  - Death [Unknown]
  - Linear IgA disease [Fatal]
